FAERS Safety Report 20965220 (Version 2)
Quarter: 2022Q3

REPORT INFORMATION
  Report Type: Report from Study
  Country: CA (occurrence: CA)
  Receive Date: 20220616
  Receipt Date: 20220630
  Transmission Date: 20221027
  Serious: Yes (Other)
  Sender: FDA-Public Use
  Company Number: CA-NOVARTISPH-PHHY2018CA161395

PATIENT
  Age: 46 Year
  Sex: Female
  Weight: 72 kg

DRUGS (11)
  1. COSENTYX [Suspect]
     Active Substance: SECUKINUMAB
     Indication: Psoriasis
     Dosage: 300 MG, UNK
     Route: 058
     Dates: start: 20180719, end: 20180816
  2. COSENTYX [Suspect]
     Active Substance: SECUKINUMAB
     Dosage: 300 MG, UNK
     Route: 058
     Dates: start: 20180913, end: 20181213
  3. COSENTYX [Suspect]
     Active Substance: SECUKINUMAB
     Dosage: 300 MG, UNK
     Route: 058
     Dates: start: 20190114, end: 20210108
  4. COSENTYX [Suspect]
     Active Substance: SECUKINUMAB
     Dosage: 300 MG, UNK
     Route: 058
     Dates: start: 20210208, end: 20210716
  5. COSENTYX [Suspect]
     Active Substance: SECUKINUMAB
     Dosage: 300 MG, UNK
     Route: 058
     Dates: start: 20210716
  6. COSENTYX [Suspect]
     Active Substance: SECUKINUMAB
     Dosage: 300 MG, QMO
     Route: 058
  7. AMCINONIDE [Concomitant]
     Active Substance: AMCINONIDE
     Indication: Product used for unknown indication
     Dosage: UNK
     Route: 065
     Dates: start: 2017
  8. AMCINONIDE [Concomitant]
     Active Substance: AMCINONIDE
     Dosage: UNK UNK, BID
     Route: 065
     Dates: end: 20190330
  9. AZITHROMYCIN [Concomitant]
     Active Substance: AZITHROMYCIN
     Indication: Product used for unknown indication
     Dosage: UNK
     Route: 065
     Dates: start: 20190114, end: 20190114
  10. AZITHROMYCIN [Concomitant]
     Active Substance: AZITHROMYCIN
     Dosage: 250 MG, QD
     Route: 048
     Dates: end: 20200120
  11. FUCIDIN [Concomitant]
     Active Substance: FUSIDATE SODIUM
     Indication: Product used for unknown indication
     Dosage: UNK
     Route: 061
     Dates: start: 20220503, end: 20220507

REACTIONS (5)
  - Perineal infection [Recovered/Resolved]
  - Weight increased [Recovered/Resolved]
  - Otitis externa [Recovered/Resolved]
  - Otitis externa [Recovered/Resolved]
  - Otitis externa [Recovered/Resolved]

NARRATIVE: CASE EVENT DATE: 20180820
